FAERS Safety Report 10287684 (Version 1)
Quarter: 2014Q3

REPORT INFORMATION
  Report Type: Spontaneous
  Country: US (occurrence: None)
  Receive Date: 20140707
  Receipt Date: 20140707
  Transmission Date: 20150326
  Serious: Yes (Life-Threatening, Hospitalization, Other)
  Sender: FDA-Public Use
  Company Number: AUR-APL-2014-05801

PATIENT
  Age: 23 Year
  Sex: Female

DRUGS (3)
  1. TRAMADOL HYDRCHLORIDE [Suspect]
     Active Substance: TRAMADOL HYDROCHLORIDE
     Indication: BACK PAIN
     Route: 048
  2. METAXALONE (METAXALONE) [Suspect]
     Active Substance: METAXALONE
     Indication: BACK PAIN
     Route: 048
  3. NAPROXEN (NAPROXEN) UNKNOWN [Suspect]
     Active Substance: NAPROXEN
     Indication: BACK PAIN
     Route: 048

REACTIONS (18)
  - Respiratory depression [None]
  - Serotonin syndrome [None]
  - Hypoxia [None]
  - Muscle rigidity [None]
  - Hypotonia [None]
  - Blood prolactin increased [None]
  - Status epilepticus [None]
  - Autonomic nervous system imbalance [None]
  - Suicidal behaviour [None]
  - Somnolence [None]
  - Hyperthermia [None]
  - Miosis [None]
  - Overdose [None]
  - Unresponsive to stimuli [None]
  - Tachycardia [None]
  - Hyperhidrosis [None]
  - Clonus [None]
  - Mydriasis [None]
